FAERS Safety Report 8205230-9 (Version None)
Quarter: 2012Q1

REPORT INFORMATION
  Report Type: 
  Country: None (occurrence: None)
  Receive Date: 20120313
  Receipt Date: 20120305
  Transmission Date: 20120608
  Serious: Yes (Hospitalization, Other)
  Sender: FDA-Public Use
  Company Number: NL-TEVA-326390ISR

PATIENT
  Age: 40 Year
  Sex: Male

DRUGS (2)
  1. CLOZAPINE [Suspect]
     Indication: SCHIZOPHRENIA
     Route: 065
  2. CIPROFLOXACIN [Concomitant]
     Indication: URINARY TRACT INFECTION
     Dosage: 1000 MILLIGRAM;
     Route: 065

REACTIONS (6)
  - EOSINOPHILIA [None]
  - EOSINOPHILIC COLITIS [None]
  - LYMPHOCYTOSIS [None]
  - LEUKOCYTOSIS [None]
  - DIARRHOEA [None]
  - DEHYDRATION [None]
